FAERS Safety Report 7479487-6 (Version None)
Quarter: 2011Q2

REPORT INFORMATION
  Report Type: 
  Country: None (occurrence: None)
  Receive Date: 20110513
  Receipt Date: 20110429
  Transmission Date: 20111010
  Serious: Yes (Other)
  Sender: FDA-Public Use
  Company Number: DE-JNJFOC-20100605787

PATIENT
  Sex: Female
  Weight: 60.01 kg

DRUGS (5)
  1. REMICADE [Suspect]
     Indication: JUVENILE ARTHRITIS
     Dosage: FOR 4 MONTHS
     Route: 042
  2. METHOTREXATE SODIUM [Suspect]
  3. ENBREL [Suspect]
     Indication: JUVENILE ARTHRITIS
  4. METHOTREXATE SODIUM [Suspect]
     Indication: JUVENILE ARTHRITIS
  5. HUMIRA [Suspect]
     Indication: JUVENILE ARTHRITIS

REACTIONS (1)
  - CERVICAL DYSPLASIA [None]
